FAERS Safety Report 21797276 (Version 1)
Quarter: 2022Q4

REPORT INFORMATION
  Report Type: Spontaneous
  Country: JP (occurrence: JP)
  Receive Date: 20221230
  Receipt Date: 20221230
  Transmission Date: 20230113
  Serious: Yes (Other)
  Sender: FDA-Public Use
  Company Number: JP-ASTELLAS-2022JP016394

PATIENT
  Age: 67 Year
  Sex: Male

DRUGS (3)
  1. PADCEV [Suspect]
     Active Substance: ENFORTUMAB VEDOTIN-EJFV
     Indication: Ureteric cancer metastatic
     Dosage: 1 MG/KG, DRUG WAS ADMINISTERED ON WEEK 1, 2, 3 AND REST ON WEEK 4
     Route: 041
     Dates: start: 20220927
  2. PADCEV [Suspect]
     Active Substance: ENFORTUMAB VEDOTIN-EJFV
     Route: 041
     Dates: start: 20221101, end: 20221115
  3. PADCEV [Suspect]
     Active Substance: ENFORTUMAB VEDOTIN-EJFV
     Route: 041
     Dates: start: 20221129, end: 20221213

REACTIONS (9)
  - Diabetes mellitus [Unknown]
  - Neuropathy peripheral [Unknown]
  - Somnolence [Unknown]
  - Alopecia [Unknown]
  - Weight decreased [Unknown]
  - Hyperglycaemia [Unknown]
  - Dry eye [Unknown]
  - Dysgeusia [Unknown]
  - Inappropriate schedule of product administration [Unknown]

NARRATIVE: CASE EVENT DATE: 20221101
